FAERS Safety Report 8460270-X (Version None)
Quarter: 2012Q2

REPORT INFORMATION
  Report Type: 
  Country: None (occurrence: None)
  Receive Date: 20120323
  Receipt Date: 20110914
  Transmission Date: 20120825
  Serious: Yes (Hospitalization)
  Sender: FDA-Public Use
  Company Number: 163-21880-11091711

PATIENT
  Age: 73 Year
  Sex: Female

DRUGS (9)
  1. ACETAMINOPHEN [Concomitant]
  2. CALTRATE 600+D (CALCITE D) [Concomitant]
  3. HYDROCODONE+ACETAMINOPHEN (PROCET) [Concomitant]
  4. LIPITOR [Concomitant]
  5. LENALIDOMIDE [Suspect]
     Indication: MULTIPLE MYELOMA
     Dosage: 25 MG,PO
     Route: 048
     Dates: start: 20110817
  6. SYNTHROID [Concomitant]
  7. PREVACID [Concomitant]
  8. PROCHLORPERAZINE EDISYLATE [Concomitant]
  9. ONDANSETRON HCL (ONDANSETRON HYDROCHLORIDE) [Concomitant]

REACTIONS (2)
  - URINARY TRACT INFECTION [None]
  - URTICARIA [None]
